FAERS Safety Report 9976108 (Version 1)
Quarter: 2014Q1

REPORT INFORMATION
  Report Type: Spontaneous
  Country: DK (occurrence: DE)
  Receive Date: 20140306
  Receipt Date: 20140306
  Transmission Date: 20141002
  Serious: Yes (Congenital Anomaly)
  Sender: FDA-Public Use
  Company Number: DE-FRI-1000060393

PATIENT
  Age: 0 Day
  Sex: Male
  Weight: 2.78 kg

DRUGS (7)
  1. CITALOPRAM [Suspect]
     Dosage: 10 MG
     Route: 064
     Dates: start: 20120701, end: 20121221
  2. TREVILOR [Suspect]
     Dosage: 75 MG
     Route: 064
     Dates: start: 20120330, end: 20120501
  3. METOBETA [Concomitant]
     Dosage: 100 MG
     Route: 064
     Dates: start: 20120330, end: 20121221
  4. L-THYROXIN [Concomitant]
     Dosage: 125 MICROGRAMS
     Route: 064
     Dates: start: 20120330, end: 20121221
  5. FRAGMIN [Concomitant]
     Dosage: 7500 IU
     Route: 064
     Dates: start: 20120503, end: 20121221
  6. ASS [Concomitant]
     Dosage: 100 MG
     Route: 064
     Dates: start: 20120510, end: 20121115
  7. FOLIO [Concomitant]
     Indication: PROPHYLAXIS OF NEURAL TUBE DEFECT
     Dosage: 0.4 MG
     Route: 064
     Dates: start: 20120502, end: 20121217

REACTIONS (3)
  - Congenital hydronephrosis [Not Recovered/Not Resolved]
  - Haemangioma [Unknown]
  - Foetal exposure during pregnancy [Not Recovered/Not Resolved]
